FAERS Safety Report 15655421 (Version 6)
Quarter: 2019Q1

REPORT INFORMATION
  Report Type: Spontaneous
  Country: US (occurrence: US)
  Receive Date: 20181126
  Receipt Date: 20190320
  Transmission Date: 20190417
  Serious: No
  Sender: FDA-Public Use
  Company Number: US-ASTRAZENECA-2010BM11024

PATIENT
  Sex: Female
  Weight: 70.5 kg

DRUGS (10)
  1. BYETTA [Suspect]
     Active Substance: EXENATIDE
     Indication: TYPE 2 DIABETES MELLITUS
     Route: 058
  2. BYDUREON BCISE [Suspect]
     Active Substance: EXENATIDE
     Route: 058
     Dates: start: 201808
  3. BYETTA [Suspect]
     Active Substance: EXENATIDE
     Indication: TYPE 2 DIABETES MELLITUS
     Route: 058
  4. BYETTA [Suspect]
     Active Substance: EXENATIDE
     Indication: TYPE 2 DIABETES MELLITUS
     Route: 058
  5. EXENATIDE. [Concomitant]
     Active Substance: EXENATIDE
  6. BYETTA [Suspect]
     Active Substance: EXENATIDE
     Indication: TYPE 2 DIABETES MELLITUS
     Route: 058
  7. EPSOM SALT [Concomitant]
     Active Substance: MAGNESIUM SULFATE
     Dosage: UNK
  8. RANITIDINE. [Concomitant]
     Active Substance: RANITIDINE
  9. METFORMIN [Concomitant]
     Active Substance: METFORMIN HYDROCHLORIDE
     Dosage: UNK
  10. AVALOX [Concomitant]
     Active Substance: MOXIFLOXACIN HYDROCHLORIDE
     Dosage: UNK

REACTIONS (30)
  - Neuropathy peripheral [Unknown]
  - Inappropriate schedule of product administration [Not Recovered/Not Resolved]
  - Tendonitis [Not Recovered/Not Resolved]
  - Blood glucose decreased [Unknown]
  - Injection site nodule [Unknown]
  - Incorrect dose administered [Not Recovered/Not Resolved]
  - Exostosis [Not Recovered/Not Resolved]
  - Inflammation [Not Recovered/Not Resolved]
  - Feeling cold [Unknown]
  - Hunger [Unknown]
  - Weight increased [Recovered/Resolved]
  - Tension [Unknown]
  - Weight decreased [Unknown]
  - Decreased appetite [Unknown]
  - Product dose omission [Unknown]
  - Tendon calcification [Not Recovered/Not Resolved]
  - Swelling [Recovering/Resolving]
  - Blood glucose increased [Unknown]
  - Malaise [Recovered/Resolved]
  - Diarrhoea [Recovered/Resolved]
  - Injection site haemorrhage [Unknown]
  - Off label use [Unknown]
  - Device malfunction [Unknown]
  - Device issue [Unknown]
  - Pain [Unknown]
  - Gastrooesophageal reflux disease [Recovered/Resolved]
  - Bursitis [Not Recovered/Not Resolved]
  - Injection site mass [Unknown]
  - Confusional state [Unknown]
  - Device leakage [Unknown]
